FAERS Safety Report 10027775 (Version 3)
Quarter: 2014Q2

REPORT INFORMATION
  Report Type: Spontaneous
  Country: BR (occurrence: BR)
  Receive Date: 20140321
  Receipt Date: 20140423
  Transmission Date: 20141212
  Serious: Yes (Hospitalization, Other)
  Sender: FDA-Public Use
  Company Number: BR-NOVOPROD-403295

PATIENT
  Sex: Male
  Weight: 3.66 kg

DRUGS (2)
  1. LEVEMIR PENFILL [Suspect]
     Indication: TYPE 1 DIABETES MELLITUS
     Dosage: 58 IU, QD (42 IU IN MORNING AND 16 IU AT NIGHT)
     Route: 064
     Dates: start: 201210
  2. LEVEMIR PENFILL [Suspect]
     Dosage: UNK
     Route: 064

REACTIONS (5)
  - Neonatal respiratory failure [Recovered/Resolved]
  - Hypoglycaemia neonatal [Recovered/Resolved]
  - Respiratory tract infection [Recovered/Resolved]
  - Premature baby [Unknown]
  - Foetal exposure during pregnancy [Unknown]
